FAERS Safety Report 21874740 (Version 1)
Quarter: 2023Q1

REPORT INFORMATION
  Report Type: Spontaneous
  Country: US (occurrence: None)
  Receive Date: 20230117
  Receipt Date: 20230117
  Transmission Date: 20230417
  Serious: No
  Sender: FDA-Public Use
  Company Number: 2023A008645

PATIENT
  Age: 18804 Day
  Sex: Female
  Weight: 61.2 kg

DRUGS (2)
  1. BUDESONIDE\FORMOTEROL\GLYCOPYRRONIUM [Suspect]
     Active Substance: BUDESONIDE\FORMOTEROL\GLYCOPYRRONIUM
     Indication: Emphysema
     Dosage: 160/9/4.8 UG 2 PUFFS TWICE A DAY
     Route: 055
     Dates: start: 2020
  2. SYMBICORT [Suspect]
     Active Substance: BUDESONIDE\FORMOTEROL FUMARATE DIHYDRATE
     Indication: Emphysema
     Dosage: DOSE AND FREQUENCY UNKNOWN UNKNOWN
     Route: 055

REACTIONS (6)
  - COVID-19 [Recovered/Resolved with Sequelae]
  - Central nervous system lupus [Unknown]
  - Visual impairment [Unknown]
  - Adverse event [Unknown]
  - Medication error [Unknown]
  - Device use issue [Unknown]

NARRATIVE: CASE EVENT DATE: 20221126
